FAERS Safety Report 8066010-0 (Version None)
Quarter: 2012Q1

REPORT INFORMATION
  Report Type: 
  Country: None (occurrence: None)
  Receive Date: 20120124
  Receipt Date: 20120118
  Transmission Date: 20120608
  Serious: Yes (Other)
  Sender: FDA-Public Use
  Company Number: US-AMGEN-USASP2011060076

PATIENT
  Age: 41 Year
  Sex: Female
  Weight: 112 kg

DRUGS (2)
  1. ENBREL [Suspect]
     Indication: RHEUMATOID ARTHRITIS
     Dosage: 50 MG, QWK
     Route: 058
     Dates: start: 20101209, end: 20111202
  2. ENBREL [Suspect]
     Indication: OSTEOARTHRITIS

REACTIONS (6)
  - BLOOD GLUCOSE INCREASED [None]
  - SINUSITIS [None]
  - DRUG DOSE OMISSION [None]
  - VISION BLURRED [None]
  - OBESITY [None]
  - DIABETES MELLITUS [None]
